FAERS Safety Report 6358760-9 (Version None)
Quarter: 2009Q3

REPORT INFORMATION
  Report Type: 
  Country: None (occurrence: None)
  Receive Date: 20090916
  Receipt Date: 20090812
  Transmission Date: 20100115
  Serious: No
  Sender: FDA-Public Use
  Company Number: US-ABBOTT-09P-163-0591405-00

PATIENT
  Age: 36 Year
  Sex: Male
  Weight: 136.2 kg

DRUGS (2)
  1. TRILIPIX [Suspect]
     Indication: LIPIDS INCREASED
     Dates: start: 20090601
  2. TRICOR [Suspect]
     Indication: LIPIDS INCREASED
     Dates: start: 20080101, end: 20090601

REACTIONS (2)
  - HEPATIC ENZYME INCREASED [None]
  - LIPIDS ABNORMAL [None]
